FAERS Safety Report 7019854-8 (Version None)
Quarter: 2010Q3

REPORT INFORMATION
  Report Type: 
  Country: None (occurrence: None)
  Receive Date: 20100923
  Receipt Date: 20100914
  Transmission Date: 20110219
  Serious: Yes (Other)
  Sender: FDA-Public Use
  Company Number: 2010US002985

PATIENT
  Age: 77 Year
  Sex: Male

DRUGS (9)
  1. VESICARE [Suspect]
     Indication: BLADDER DISORDER
     Dosage: 10 MG, TOTAL DOSE, ORAL ; 10 MG, UID/QD, ORAL
     Route: 048
     Dates: start: 20100101, end: 20100101
  2. VESICARE [Suspect]
     Indication: BLADDER DISORDER
     Dosage: 10 MG, TOTAL DOSE, ORAL ; 10 MG, UID/QD, ORAL
     Route: 048
     Dates: start: 20100401, end: 20100614
  3. UROXATRAL [Concomitant]
  4. DIOVAN [Concomitant]
  5. ATENOLOL [Concomitant]
  6. AMLODIPINE [Concomitant]
  7. UROCIT-K [Concomitant]
  8. ASPIRIN [Concomitant]
  9. ALEVE [Concomitant]

REACTIONS (2)
  - MACULAR DEGENERATION [None]
  - PHOTOPHOBIA [None]
